FAERS Safety Report 13952831 (Version 1)
Quarter: 2017Q3

REPORT INFORMATION
  Report Type: Spontaneous
  Country: US (occurrence: US)
  Receive Date: 20170911
  Receipt Date: 20170911
  Transmission Date: 20171128
  Serious: No
  Sender: FDA-Public Use
  Company Number: US-TEVA-765887ACC

PATIENT

DRUGS (4)
  1. FENTANYL. [Suspect]
     Active Substance: FENTANYL
     Dosage: 50 MCG/HR
  2. FENTANYL. [Suspect]
     Active Substance: FENTANYL
     Dosage: 12 MCG/HR
  3. FENTANYL. [Suspect]
     Active Substance: FENTANYL
     Dosage: 75 MCG/HR
  4. FENTANYL. [Suspect]
     Active Substance: FENTANYL
     Indication: PAIN
     Dosage: 100 MCG/HR

REACTIONS (4)
  - Product adhesion issue [Unknown]
  - Skin irritation [Unknown]
  - Product quality issue [Unknown]
  - Wrong technique in product usage process [Unknown]
